FAERS Safety Report 13982479 (Version 2)
Quarter: 2020Q3

REPORT INFORMATION
  Report Type: Report from Study
  Country: FR (occurrence: FR)
  Receive Date: 20170918
  Receipt Date: 20171031
  Transmission Date: 20201105
  Serious: Yes (Hospitalization)
  Sender: FDA-Public Use
  Company Number: FR-VANDA PHARMACEUTICALS, INC-2017TASFR001785

PATIENT
  Age: 39 Year
  Sex: Female
  Weight: 44.5 kg

DRUGS (8)
  1. NEUROTIN (GABAPENTIN) [Concomitant]
     Active Substance: GABAPENTIN
     Indication: PARAESTHESIA
     Dosage: UNK
     Route: 048
     Dates: start: 2017
  2. TASIMELTEON [Suspect]
     Active Substance: TASIMELTEON
     Dosage: 20 MG, QD
     Route: 048
     Dates: start: 20170721
  3. LEVOTHYROX [Suspect]
     Active Substance: LEVOTHYROXINE
     Dosage: 75 MG, UNK
  4. LEVOTHYROX [Suspect]
     Active Substance: LEVOTHYROXINE
     Indication: BLOOD THYROID STIMULATING HORMONE DECREASED
     Dosage: 50 MG, UNK
  5. VITAMIN B12 [Concomitant]
     Active Substance: CYANOCOBALAMIN
     Indication: PERNICIOUS ANAEMIA
     Dosage: UNK
     Route: 048
     Dates: start: 2017
  6. NEUROTIN (GABAPENTIN) [Concomitant]
     Active Substance: GABAPENTIN
     Indication: BACK PAIN
     Dosage: 300 MG, TID
     Route: 048
     Dates: start: 20170721
  7. VITAMIN B12 [Concomitant]
     Active Substance: CYANOCOBALAMIN
     Indication: BACK PAIN
     Dosage: 1000 UG/4 ML, ONCE A DAY
     Route: 048
     Dates: start: 20170721
  8. TASIMELTEON [Suspect]
     Active Substance: TASIMELTEON
     Indication: CIRCADIAN RHYTHM SLEEP DISORDER
     Dosage: 20 MG, QD
     Route: 048
     Dates: start: 20110201, end: 20170528

REACTIONS (1)
  - Back pain [Recovered/Resolved]

NARRATIVE: CASE EVENT DATE: 20170714
